FAERS Safety Report 7424696-5 (Version None)
Quarter: 2011Q2

REPORT INFORMATION
  Report Type: 
  Country: None (occurrence: None)
  Receive Date: 20110419
  Receipt Date: 20110412
  Transmission Date: 20111010
  Serious: Yes (Other)
  Sender: FDA-Public Use
  Company Number: IT-B.I. PHARMACEUTICALS,INC./RIDGEFIELD-2011-DE-02443GD

PATIENT
  Sex: Female

DRUGS (2)
  1. LEVODOPA [Suspect]
     Indication: PARKINSON'S DISEASE
  2. PRAMIPEXOLE DIHYDROCHLORIDE [Suspect]
     Indication: PARKINSON'S DISEASE
     Dosage: 1.5 MG

REACTIONS (4)
  - WEIGHT INCREASED [None]
  - IMPULSE-CONTROL DISORDER [None]
  - STEREOTYPY [None]
  - ECONOMIC PROBLEM [None]
